FAERS Safety Report 5139586-0 (Version None)
Quarter: 2006Q4

REPORT INFORMATION
  Report Type: 
  Country: None (occurrence: None)
  Receive Date: 20061024
  Receipt Date: 20061020
  Transmission Date: 20070319
  Serious: Yes (Hospitalization)
  Sender: FDA-Public Use
  Company Number: 2006-149188-NL

PATIENT
  Age: 58 Year
  Sex: Female

DRUGS (11)
  1. DANAPAROID SODIUM [Suspect]
     Dosage: DF
     Dates: start: 20060221
  2. METHADONE HYDROCHLORIDE [Concomitant]
  3. DARBEPOETIN ALFA [Concomitant]
  4. MYCOPHENOLATE MOFETIL [Concomitant]
  5. PREDNISOLONE [Concomitant]
  6. FLUOXETINE HYDROCHLORIDE [Concomitant]
  7. CALCIUM CARBONATE [Concomitant]
  8. CALCITRIOL [Concomitant]
  9. FOLIC ACID [Concomitant]
  10. MEGA B [Concomitant]
  11. RABEPRAZOLE SODIUM [Concomitant]

REACTIONS (1)
  - PLATELET COUNT DECREASED [None]
